FAERS Safety Report 24833696 (Version 1)
Quarter: 2025Q1

REPORT INFORMATION
  Report Type: Spontaneous
  Country: US (occurrence: US)
  Receive Date: 20250112
  Receipt Date: 20250112
  Transmission Date: 20250408
  Serious: No
  Sender: BRISTOL-MYERS SQUIBB COMPANY
  Company Number: US-BRISTOL-MYERS SQUIBB COMPANY-2025-003938

PATIENT
  Age: 78 Year
  Sex: Male
  Weight: 111.13 kg

DRUGS (2)
  1. POMALYST [Suspect]
     Active Substance: POMALIDOMIDE
     Indication: Plasma cell myeloma
     Route: 048
     Dates: start: 2022
  2. POMALYST [Suspect]
     Active Substance: POMALIDOMIDE

REACTIONS (2)
  - Fatigue [Not Recovered/Not Resolved]
  - Off label use [Unknown]
